FAERS Safety Report 7273011-9 (Version None)
Quarter: 2011Q1

REPORT INFORMATION
  Report Type: 
  Country: None (occurrence: None)
  Receive Date: 20110203
  Receipt Date: 20110127
  Transmission Date: 20110831
  Serious: Yes (Other)
  Sender: FDA-Public Use
  Company Number: B0693260A

PATIENT
  Age: 3 Year
  Sex: Male
  Weight: 14 kg

DRUGS (1)
  1. AMOXICILLIN AND CLAVULANATE POTASSIUM [Suspect]
     Dosage: 40MGK PER DAY
     Route: 048
     Dates: start: 20101217, end: 20101220

REACTIONS (6)
  - SCROTAL PAIN [None]
  - DRUG ERUPTION [None]
  - PENILE SWELLING [None]
  - DERMATITIS ALLERGIC [None]
  - PENILE PAIN [None]
  - SKIN EROSION [None]
